FAERS Safety Report 15595785 (Version 4)
Quarter: 2019Q1

REPORT INFORMATION
  Report Type: Report from Study
  Country: AT (occurrence: AT)
  Receive Date: 20181107
  Receipt Date: 20190319
  Transmission Date: 20190417
  Serious: Yes (Other)
  Sender: FDA-Public Use
  Company Number: AT-ROCHE-2200138

PATIENT
  Age: 61 Year
  Sex: Female
  Weight: 80 kg

DRUGS (21)
  1. DAFLON [Concomitant]
     Route: 065
  2. NOVALGIN (AUSTRIA) [Concomitant]
     Indication: BACK PAIN
     Route: 065
     Dates: start: 20171212
  3. ZYRTEC [Concomitant]
     Active Substance: CETIRIZINE HYDROCHLORIDE
     Indication: PRURITUS
     Route: 065
     Dates: start: 20170327
  4. TRASTUZUMAB EMTANSINE [Suspect]
     Active Substance: ADO-TRASTUZUMAB EMTANSINE
     Indication: HER-2 POSITIVE BREAST CANCER
     Dosage: MOST RECENT DOSE PRIOR TO THE EVENT: 15/MAY/2018
     Route: 042
     Dates: start: 20171212, end: 20180424
  5. NAVELBINE [Suspect]
     Active Substance: VINORELBINE TARTRATE
     Indication: HER-2 POSITIVE BREAST CANCER
     Dosage: MOST RECENT DOSE PRIOR TO THE EVENT RECEIVED ON 27/JUN/2017
     Route: 048
     Dates: start: 20170306, end: 20170530
  6. TRASTUZUMAB EMTANSINE [Suspect]
     Active Substance: ADO-TRASTUZUMAB EMTANSINE
     Dosage: MOST RECENT DOSE PRIOR TO THE EVENT
     Route: 042
     Dates: start: 20180515
  7. TRITTICO [Concomitant]
     Active Substance: TRAZODONE HYDROCHLORIDE
     Route: 065
     Dates: start: 20181215
  8. XELODA [Suspect]
     Active Substance: CAPECITABINE
     Indication: HER-2 POSITIVE BREAST CANCER
     Route: 048
     Dates: start: 20180904, end: 20180910
  9. PASPERTIN (AUSTRIA) [Concomitant]
     Route: 065
     Dates: start: 20171212
  10. LAEVOLAC [Concomitant]
     Active Substance: LACTULOSE
     Route: 065
     Dates: start: 20171212
  11. EMEND [Concomitant]
     Active Substance: APREPITANT
     Route: 065
     Dates: start: 20180129, end: 20181015
  12. NOVALGIN (AUSTRIA) [Concomitant]
     Indication: HEPATIC PAIN
     Route: 065
     Dates: start: 20170327
  13. KYTRIL [Concomitant]
     Active Substance: GRANISETRON HYDROCHLORIDE
     Route: 065
     Dates: start: 20171212, end: 20181013
  14. EMEND [Concomitant]
     Active Substance: APREPITANT
     Route: 065
     Dates: start: 20180127, end: 20181013
  15. PERTUZUMAB. [Suspect]
     Active Substance: PERTUZUMAB
     Indication: HER-2 POSITIVE BREAST CANCER
     Route: 042
     Dates: start: 20170306, end: 20171121
  16. TRASTUZUMAB. [Suspect]
     Active Substance: TRASTUZUMAB
     Indication: HER-2 POSITIVE BREAST CANCER
     Dosage: MOST RECENT DOSE PRIOR TO THE EVENT WAS RECEIVED ON 04/SEP/2018, 23/OCT/2018
     Route: 042
     Dates: start: 20170306, end: 20171121
  17. PANTOLOC [Concomitant]
     Active Substance: PANTOPRAZOLE SODIUM
     Route: 065
     Dates: start: 20170302
  18. HYDAL [Concomitant]
     Active Substance: HYDROMORPHONE HYDROCHLORIDE
     Indication: BACK PAIN
     Route: 065
     Dates: start: 20180628
  19. LYRICA [Concomitant]
     Active Substance: PREGABALIN
     Indication: BACK PAIN
     Route: 065
     Dates: start: 20181227
  20. EMEND [Concomitant]
     Active Substance: APREPITANT
     Route: 065
     Dates: start: 20180128, end: 20181014
  21. DEXAMETHASON [Concomitant]
     Active Substance: DEXAMETHASONE
     Route: 065
     Dates: start: 20170829, end: 20181013

REACTIONS (6)
  - Vertigo [Not Recovered/Not Resolved]
  - Angina pectoris [Recovered/Resolved]
  - Polyneuropathy [Not Recovered/Not Resolved]
  - Vertigo [Recovered/Resolved]
  - Headache [Recovered/Resolved]
  - Visual impairment [Not Recovered/Not Resolved]

NARRATIVE: CASE EVENT DATE: 20180904
